FAERS Safety Report 7469566-1 (Version None)
Quarter: 2011Q2

REPORT INFORMATION
  Report Type: 
  Country: None (occurrence: None)
  Receive Date: 20110429
  Receipt Date: 20110414
  Transmission Date: 20111010
  Serious: Yes (Hospitalization)
  Sender: FDA-Public Use
  Company Number: 1000020378

PATIENT
  Age: 38 Year
  Sex: Female

DRUGS (4)
  1. ABILIFY [Suspect]
     Dosage: 7.5 MG (7.5 MG,1 IN 1 D), ORAL
     Route: 048
     Dates: start: 20100922, end: 20100927
  2. ESCITALOPRAM [Suspect]
     Dosage: 20 MG (20 MG,1 IN 1 D), ORAL
     Route: 048
     Dates: start: 20100922, end: 20101014
  3. SEROQUEL [Suspect]
     Dosage: 25-200 MG,ORAL
     Route: 048
     Dates: start: 20100922
  4. METHADONE HYDROCHLORIDE [Suspect]
     Dosage: 35 MG (35 MG,1 IN 1 D), ORAL
     Route: 048
     Dates: start: 20100922, end: 20100923

REACTIONS (14)
  - OVERDOSE [None]
  - TOTAL CHOLESTEROL/HDL RATIO DECREASED [None]
  - BLOOD THYROID STIMULATING HORMONE INCREASED [None]
  - AGITATION [None]
  - DRUG SCREEN POSITIVE [None]
  - DRUG INTERACTION [None]
  - DRUG ABUSER [None]
  - CREATININE URINE DECREASED [None]
  - DRUG WITHDRAWAL SYNDROME [None]
  - BACTERIAL TEST POSITIVE [None]
  - BLOOD CHOLESTEROL INCREASED [None]
  - HIGH DENSITY LIPOPROTEIN INCREASED [None]
  - MEAN CELL HAEMOGLOBIN CONCENTRATION INCREASED [None]
  - AKATHISIA [None]
